FAERS Safety Report 4643538-4 (Version None)
Quarter: 2005Q2

REPORT INFORMATION
  Report Type: 
  Country: None (occurrence: None)
  Receive Date: 20050425
  Receipt Date: 20050413
  Transmission Date: 20051028
  Serious: Yes (Other)
  Sender: FDA-Public Use
  Company Number: US-JNJFOC-20050305297

PATIENT
  Sex: Male
  Weight: 70.45 kg

DRUGS (5)
  1. REMICADE [Suspect]
     Route: 042
  2. REMICADE [Suspect]
     Indication: CROHN'S DISEASE
     Route: 042
  3. IMURAN [Concomitant]
     Indication: CROHN'S DISEASE
  4. PENTASA [Concomitant]
  5. FLAGYL [Concomitant]
     Dosage: FINISHED PRIOR TO INFLIXIMAB INFUSIONS.

REACTIONS (4)
  - COORDINATION ABNORMAL [None]
  - DIZZINESS [None]
  - DYSARTHRIA [None]
  - VISION BLURRED [None]
